FAERS Safety Report 11181874 (Version 1)
Quarter: 2015Q2

REPORT INFORMATION
  Report Type: Spontaneous
  Country: AU (occurrence: AU)
  Receive Date: 20150611
  Receipt Date: 20150611
  Transmission Date: 20150821
  Serious: Yes (Other)
  Sender: FDA-Public Use
  Company Number: AU-BAYER-2015-298183

PATIENT
  Age: 62 Year

DRUGS (2)
  1. CLOPIDOGREL [Interacting]
     Active Substance: CLOPIDOGREL BISULFATE
  2. ASPRO [Suspect]
     Active Substance: ASPIRIN\SODIUM BICARBONATE

REACTIONS (4)
  - Haemorrhage intracranial [None]
  - Labelled drug-drug interaction medication error [None]
  - Aphasia [None]
  - Hemiplegia [None]
